FAERS Safety Report 9807501 (Version 1)
Quarter: 2014Q1

REPORT INFORMATION
  Report Type: Spontaneous
  Country: US (occurrence: US)
  Receive Date: 20140110
  Receipt Date: 20140110
  Transmission Date: 20141002
  Serious: No
  Sender: FDA-Public Use
  Company Number: US-SANOFI-AVENTIS-2011SA044500

PATIENT
  Age: 82 Year
  Sex: Female
  Weight: 59 kg

DRUGS (10)
  1. PLAVIX [Suspect]
     Indication: STENT PLACEMENT
     Route: 048
     Dates: start: 20110501, end: 20121210
  2. PLAVIX [Suspect]
     Indication: ANGIOGRAM
     Route: 048
     Dates: start: 20110501, end: 20121210
  3. PLAVIX [Suspect]
     Indication: STENT PLACEMENT
     Route: 048
     Dates: start: 20110501, end: 20121210
  4. PLAVIX [Suspect]
     Indication: ANGIOGRAM
     Route: 048
     Dates: start: 20110501, end: 20121210
  5. ASPIRIN [Suspect]
     Route: 065
  6. CRESTOR /UNK/ [Concomitant]
     Indication: BLOOD CHOLESTEROL ABNORMAL
     Dates: start: 2010
  7. ATACAND [Concomitant]
     Indication: BLOOD PRESSURE ABNORMAL
  8. COREG [Concomitant]
     Indication: BLOOD PRESSURE ABNORMAL
  9. NEXIUM [Concomitant]
  10. SPIRONOLACTONE [Concomitant]
     Dates: start: 20110531, end: 201106

REACTIONS (12)
  - Blood pressure decreased [Not Recovered/Not Resolved]
  - Constipation [Recovering/Resolving]
  - Colitis [Not Recovered/Not Resolved]
  - Rectal tenesmus [Unknown]
  - Asthenia [Recovering/Resolving]
  - Muscle spasms [Unknown]
  - Abdominal pain [Recovered/Resolved]
  - Decreased appetite [Recovering/Resolving]
  - Feeling abnormal [Recovering/Resolving]
  - Diarrhoea [Not Recovered/Not Resolved]
  - Headache [Not Recovered/Not Resolved]
  - Epistaxis [Recovered/Resolved]
